FAERS Safety Report 8153939-8 (Version None)
Quarter: 2012Q1

REPORT INFORMATION
  Report Type: 
  Country: None (occurrence: None)
  Receive Date: 20120221
  Receipt Date: 20120221
  Transmission Date: 20120608
  Serious: Yes (Other)
  Sender: FDA-Public Use
  Company Number: None

PATIENT
  Age: 59 Year
  Sex: Female
  Weight: 55.338 kg

DRUGS (2)
  1. LIALDA [Suspect]
     Indication: COLITIS
     Dosage: 3 TABLETS
     Route: 048
     Dates: start: 20110901, end: 20120124
  2. MESALAMINE RECTAL, SUSPENSION [Concomitant]
     Indication: COLITIS
     Dosage: 1 ENEMA
     Route: 054
     Dates: start: 20110901, end: 20120124

REACTIONS (3)
  - COLITIS [None]
  - NO THERAPEUTIC RESPONSE [None]
  - CONDITION AGGRAVATED [None]
